FAERS Safety Report 5200764-3 (Version None)
Quarter: 2006Q4

REPORT INFORMATION
  Report Type: 
  Country: None (occurrence: None)
  Receive Date: 20061016
  Receipt Date: 20060710
  Transmission Date: 20070319
  Serious: No
  Sender: FDA-Public Use
  Company Number: 2006SP002649

PATIENT
  Age: 38 Year
  Sex: Male
  Weight: 83.9154 kg

DRUGS (9)
  1. LUNESTA [Suspect]
     Indication: INSOMNIA
     Dosage: SEE IMAGE
     Route: 048
     Dates: start: 20050601, end: 20060501
  2. LUNESTA [Suspect]
     Indication: INSOMNIA
     Dosage: SEE IMAGE
     Route: 048
     Dates: start: 20060601
  3. AMANTADINE HCL [Concomitant]
  4. LISINOPRIL [Concomitant]
  5. PANTOPRAZOLE SODIUM [Concomitant]
  6. POTASSIUM ACETATE [Concomitant]
  7. PHENOBARBITAL TAB [Concomitant]
  8. CYCLOBENZAPRINE HCL [Concomitant]
  9. VITAMIN CAP [Concomitant]

REACTIONS (5)
  - ASTHMA [None]
  - DEPRESSION [None]
  - DRUG INEFFECTIVE [None]
  - MIDDLE INSOMNIA [None]
  - POLLAKIURIA [None]
